FAERS Safety Report 6660785-0 (Version None)
Quarter: 2010Q1

REPORT INFORMATION
  Report Type: 
  Country: None (occurrence: None)
  Receive Date: 20100331
  Receipt Date: 20100317
  Transmission Date: 20100710
  Serious: No
  Sender: FDA-Public Use
  Company Number: US-ASTRAZENECA-2010SE11725

PATIENT
  Age: 46 Year
  Sex: Female
  Weight: 86.2 kg

DRUGS (2)
  1. SEROQUEL [Suspect]
     Indication: DEPRESSION
     Route: 048
  2. SEROQUEL [Suspect]
     Route: 048
     Dates: start: 20100302

REACTIONS (2)
  - LYMPHADENOPATHY [None]
  - ODYNOPHAGIA [None]
